FAERS Safety Report 9145884 (Version 1)
Quarter: 2013Q1

REPORT INFORMATION
  Report Type: Spontaneous
  Country: GB (occurrence: GB)
  Receive Date: 20130307
  Receipt Date: 20130307
  Transmission Date: 20140127
  Serious: Yes (Other)
  Sender: FDA-Public Use
  Company Number: GB-COVIDIEN/TYCO HEALTHCARE/MALLINCKRODT-T201301066

PATIENT
  Sex: Male
  Weight: 76 kg

DRUGS (9)
  1. PENNSAID TOPICAL [Suspect]
     Indication: ARTHRALGIA
     Dosage: UNK (1 AS REQUIRED
     Route: 061
     Dates: start: 20130125, end: 20130128
  2. PENNSAID TOPICAL [Suspect]
     Indication: NECK PAIN
  3. ATENOLOL [Suspect]
     Indication: HYPERTENSION
     Dosage: UNK (25 MG)
     Route: 048
  4. ATENOLOL [Suspect]
     Indication: TREMOR
  5. ACIDEX                             /01521901/ [Concomitant]
     Indication: DYSPEPSIA
     Dosage: 10 ML 1 AS REQUIRED
  6. ASPIRIN [Concomitant]
     Indication: ANTICOAGULANT THERAPY
     Dosage: UNK, (75 ML
     Route: 048
  7. CO-CODAMOL [Concomitant]
     Indication: BACK PAIN
     Dosage: UNK
     Route: 048
  8. QVAR [Concomitant]
     Indication: ASTHMA
     Dosage: 4 DOSAGE FORMS (2 DOSES FORMS, 2 IN 1 DAY)
  9. SALBUTAMOL [Concomitant]
     Indication: ASTHMA
     Dosage: 2 DOSAGE FORMS, 1 AS REQUIRED

REACTIONS (1)
  - Asthma [Recovered/Resolved]
